FAERS Safety Report 11930540 (Version 1)
Quarter: 2016Q1

REPORT INFORMATION
  Report Type: Spontaneous
  Country: US (occurrence: US)
  Receive Date: 20160120
  Receipt Date: 20160120
  Transmission Date: 20160526
  Serious: No
  Sender: FDA-Public Use
  Company Number: US-ASTRAZENECA-2016SE02942

PATIENT
  Sex: Male
  Weight: 117.9 kg

DRUGS (4)
  1. BYDUREON [Suspect]
     Active Substance: EXENATIDE
     Indication: TYPE 2 DIABETES MELLITUS
     Route: 058
     Dates: start: 20160105
  2. COZAAR [Concomitant]
     Active Substance: LOSARTAN POTASSIUM
  3. INVOKANA [Concomitant]
     Active Substance: CANAGLIFLOZIN
  4. ATORVASTATIN [Concomitant]
     Active Substance: ATORVASTATIN

REACTIONS (1)
  - Blood glucose increased [Unknown]
